FAERS Safety Report 13011531 (Version 1)
Quarter: 2016Q4

REPORT INFORMATION
  Report Type: Spontaneous
  Country: FR (occurrence: FR)
  Receive Date: 20161209
  Receipt Date: 20161209
  Transmission Date: 20170207
  Serious: Yes (Hospitalization)
  Sender: FDA-Public Use
  Company Number: FR-ACCORD-046189

PATIENT
  Age: 16 Year
  Sex: Female

DRUGS (8)
  1. ONDANSETRON ACCORD [Suspect]
     Active Substance: ONDANSETRON
     Indication: PROPHYLAXIS OF NAUSEA AND VOMITING
     Dosage: 2 MG/ML, SOLUTION INJECTABLE
     Route: 042
     Dates: start: 20160926, end: 20161001
  2. CORTANCYL [Suspect]
     Active Substance: PREDNISONE
     Indication: PRODUCT USED FOR UNKNOWN INDICATION
     Route: 048
     Dates: start: 20160926, end: 20161011
  3. ETOPOSIDE MYLAN [Suspect]
     Active Substance: ETOPOSIDE
     Indication: HODGKIN^S DISEASE
     Dosage: 20 MG/ML, INTRAVENOUS INFUSION
     Dates: start: 20160926, end: 20160930
  4. VELBE [Suspect]
     Active Substance: VINBLASTINE SULFATE
     Indication: HODGKIN^S DISEASE
     Dosage: 10 MG, POUDRE POUR SOLUTION INJECTABLE I.V.??INTRAVENOUS INFUSION
     Dates: start: 20161011
  5. DOXORUBICINE TEVA [Suspect]
     Active Substance: DOXORUBICIN
     Indication: HODGKIN^S DISEASE
     Dosage: INTRAVENOUS INFUSION
     Dates: start: 20160926
  6. EMEND [Suspect]
     Active Substance: APREPITANT
     Indication: PROPHYLAXIS OF NAUSEA AND VOMITING
     Route: 048
     Dates: end: 20161018
  7. VINCRISTINE HOSPIRA [Suspect]
     Active Substance: VINCRISTINE
     Indication: HODGKIN^S DISEASE
     Dosage: 2 MG/2 ML, SOLUTION INJECTABLE??INTRAVENOUS INFUSION
     Dates: start: 20160926
  8. RIVOTRIL [Concomitant]
     Active Substance: CLONAZEPAM
     Indication: NEURALGIA
     Dates: start: 20160928, end: 20161031

REACTIONS (6)
  - Anaemia [Recovered/Resolved]
  - Ileus [Recovered/Resolved]
  - Injury [Recovered/Resolved]
  - Loss of consciousness [Recovered/Resolved]
  - Febrile bone marrow aplasia [Recovered/Resolved]
  - Neuralgia [Recovered/Resolved]

NARRATIVE: CASE EVENT DATE: 20160928
